FAERS Safety Report 8582431-1 (Version None)
Quarter: 2012Q3

REPORT INFORMATION
  Report Type: 
  Country: None (occurrence: None)
  Receive Date: 20120809
  Receipt Date: 20120802
  Transmission Date: 20120928
  Serious: Yes (Death)
  Sender: FDA-Public Use
  Company Number: IT-GLAXOSMITHKLINE-B0821449A

PATIENT
  Sex: Male

DRUGS (4)
  1. CARMUSTINE [Suspect]
     Indication: NON-HODGKIN'S LYMPHOMA
     Dosage: 500MG PER DAY
     Route: 042
     Dates: start: 20120210, end: 20120210
  2. ETOPOSIDE [Suspect]
     Indication: NON-HODGKIN'S LYMPHOMA
     Dosage: 167MG PER DAY
     Route: 042
     Dates: start: 20120211, end: 20120214
  3. CYTARABINE [Suspect]
     Indication: NON-HODGKIN'S LYMPHOMA
     Dosage: 668MG PER DAY
     Route: 042
     Dates: start: 20120211, end: 20120214
  4. ALKERAN [Suspect]
     Indication: NON-HODGKIN'S LYMPHOMA
     Dosage: 234MG PER DAY
     Route: 042
     Dates: start: 20120215, end: 20120215

REACTIONS (8)
  - CHILLS [None]
  - OXYGEN SATURATION DECREASED [None]
  - PANCYTOPENIA [None]
  - CONDITION AGGRAVATED [None]
  - PYREXIA [None]
  - LUNG INFECTION PSEUDOMONAL [None]
  - SEPTIC SHOCK [None]
  - RESPIRATORY FAILURE [None]
